FAERS Safety Report 7983932-7 (Version None)
Quarter: 2011Q4

REPORT INFORMATION
  Report Type: 
  Country: None (occurrence: None)
  Receive Date: 20111216
  Receipt Date: 20111213
  Transmission Date: 20120403
  Serious: No
  Sender: FDA-Public Use
  Company Number: US-BIOGENIDEC-2011BI047240

PATIENT
  Age: 58 Year
  Sex: Female

DRUGS (2)
  1. TYSABRI [Suspect]
     Indication: MULTIPLE SCLEROSIS
     Route: 042
     Dates: start: 20100201, end: 20100501
  2. TYSABRI [Suspect]
     Route: 042
     Dates: start: 20070101, end: 20090101

REACTIONS (2)
  - ASTHENIA [None]
  - MOBILITY DECREASED [None]
